FAERS Safety Report 20467531 (Version 1)
Quarter: 2022Q1

REPORT INFORMATION
  Report Type: Spontaneous
  Country: US (occurrence: US)
  Receive Date: 20220214
  Receipt Date: 20220214
  Transmission Date: 20220424
  Serious: No
  Sender: FDA-Public Use
  Company Number: US-APOTEX-2021AP013827

PATIENT
  Sex: Male

DRUGS (2)
  1. MODAFINIL [Suspect]
     Active Substance: MODAFINIL
     Indication: Product used for unknown indication
     Dosage: 1 DOSAGE FORM, QD, (PACK SIZE-30 BTL USA, COMPLAINT MATERIAL-67460)
     Route: 065
  2. MODAFINIL [Suspect]
     Active Substance: MODAFINIL
     Dosage: 1 DOSAGE FORM, QD (PACK SIZE-30 BTL USA, COMPLAINT MATERIAL-67460)
     Route: 065

REACTIONS (2)
  - Product formulation issue [Unknown]
  - Drug ineffective [Unknown]
